FAERS Safety Report 5371677-1 (Version None)
Quarter: 2007Q2

REPORT INFORMATION
  Report Type: 
  Country: None (occurrence: None)
  Receive Date: 20070625
  Receipt Date: 20070620
  Transmission Date: 20071010
  Serious: Yes (Hospitalization)
  Sender: FDA-Public Use
  Company Number: 2006SP008983

PATIENT
  Age: 70 Year
  Sex: Female
  Weight: 58 kg

DRUGS (10)
  1. TEMODAL [Suspect]
     Indication: GLIOBLASTOMA MULTIFORME
     Dosage: 75 MG/M2; QD; PO
     Route: 048
     Dates: start: 20061208, end: 20061219
  2. ZONISAMIDE [Suspect]
     Dosage: PO
     Route: 048
     Dates: start: 20061127, end: 20061220
  3. PRIMPERAN TAB [Suspect]
     Dosage: PO
     Route: 048
     Dates: start: 20061213, end: 20061220
  4. BAKTAR [Concomitant]
  5. LENDORMIN [Concomitant]
  6. NASEA OD [Concomitant]
  7. AMARYL [Concomitant]
  8. HUMULIN 70/30 [Concomitant]
  9. NOVOLIN R [Concomitant]
  10. NOVOLIN N [Concomitant]

REACTIONS (1)
  - TOXIC SKIN ERUPTION [None]
